FAERS Safety Report 4625158-0 (Version None)
Quarter: 2005Q2

REPORT INFORMATION
  Report Type: 
  Country: None (occurrence: None)
  Receive Date: 20050325
  Receipt Date: 20050124
  Transmission Date: 20051028
  Serious: No
  Sender: FDA-Public Use
  Company Number: USA050189131

PATIENT
  Age: 56 Year
  Sex: Female

DRUGS (3)
  1. FORTEO [Suspect]
     Indication: OSTEOPOROSIS
     Dosage: 20 UG/1 DAY
     Dates: start: 20041201
  2. PREMARIN [Concomitant]
  3. CALCIUM AND VITAMIN D [Concomitant]

REACTIONS (2)
  - ABDOMINAL PAIN UPPER [None]
  - INJECTION SITE IRRITATION [None]
